FAERS Safety Report 6011954-4 (Version None)
Quarter: 2008Q4

REPORT INFORMATION
  Report Type: 
  Country: None (occurrence: None)
  Receive Date: 20081218
  Receipt Date: 20081013
  Transmission Date: 20090506
  Serious: No
  Sender: FDA-Public Use
  Company Number: US-ASTRAZENECA-2008UW22378

PATIENT
  Age: 80 Year
  Sex: Female
  Weight: 52.6 kg

DRUGS (7)
  1. CRESTOR [Suspect]
     Indication: BLOOD CHOLESTEROL INCREASED
     Route: 048
     Dates: start: 20080901
  2. ASPIRIN [Concomitant]
  3. AMIODARONE HCL [Concomitant]
  4. DILTIAZEM [Concomitant]
  5. SYNTHROID [Concomitant]
  6. CENTRUM VITAMIN [Concomitant]
  7. CALCIUM [Concomitant]

REACTIONS (3)
  - HAEMORRHAGE [None]
  - MYALGIA [None]
  - PAIN IN EXTREMITY [None]
